FAERS Safety Report 20171150 (Version 1)
Quarter: 2021Q4

REPORT INFORMATION
  Report Type: Spontaneous
  Country: RU (occurrence: None)
  Receive Date: 20211210
  Receipt Date: 20211210
  Transmission Date: 20220303
  Serious: Yes (Other)
  Sender: FDA-Public Use
  Company Number: 2021A856131

PATIENT
  Age: 20 Year
  Sex: Female
  Weight: 68 kg

DRUGS (3)
  1. SEROQUEL [Suspect]
     Active Substance: QUETIAPINE FUMARATE
     Indication: Insomnia
     Route: 048
  2. VITAMINS [Concomitant]
     Active Substance: VITAMINS
  3. COMPLIVIT [Concomitant]

REACTIONS (4)
  - Face injury [Unknown]
  - Syncope [Unknown]
  - Muscle spasms [Unknown]
  - Off label use [Recovered/Resolved]
